FAERS Safety Report 13546492 (Version 4)
Quarter: 2017Q3

REPORT INFORMATION
  Report Type: Report from Study
  Country: FR (occurrence: FR)
  Receive Date: 20170515
  Receipt Date: 20170724
  Transmission Date: 20171127
  Serious: Yes (Death, Hospitalization)
  Sender: FDA-Public Use
  Company Number: FR-ROCHE-1923673

PATIENT
  Age: 64 Year
  Sex: Male
  Weight: 70 kg

DRUGS (13)
  1. CYCLOPHOSPHAMIDE. [Suspect]
     Active Substance: CYCLOPHOSPHAMIDE
     Indication: B-CELL LYMPHOMA
     Dosage: MOST RECENT DOSE: 11/MAR/2016 (1350 MG) AT 14:30?ROUTE AND STARTING DOSE AS PER PROTOCOL
     Route: 042
     Dates: start: 20151127
  2. BACTRIM [Concomitant]
     Active Substance: SULFAMETHOXAZOLE\TRIMETHOPRIM
     Route: 065
     Dates: start: 20151201
  3. DOXORUBICIN [Suspect]
     Active Substance: DOXORUBICIN
     Indication: B-CELL LYMPHOMA
     Dosage: DATE OF LAST DOSE 90 MG ON 11/MAR/2016 AT 15:35?ROUTE AND STARTING DOSE AS PER PROTOCOL
     Route: 042
     Dates: start: 20151127
  4. VENETOCLAX. [Suspect]
     Active Substance: VENETOCLAX
     Indication: B-CELL LYMPHOMA
     Dosage: MOST RECENT DOSE: 04/MAY/2016 (800 MG)
     Route: 048
     Dates: start: 20151130
  5. VINCRISTINE [Suspect]
     Active Substance: VINCRISTINE
     Indication: B-CELL LYMPHOMA
     Dosage: DATE OF LAST DOSE: 11/MAR/2016 (2 MG) AT 16:00?ROUTE AND STARTING DOSE AS PER PROTOCOL
     Route: 050
     Dates: start: 20151127
  6. BISEPTINE [Concomitant]
     Active Substance: BENZALKONIUM CHLORIDE\BENZYL ALCOHOL\CHLORHEXIDINE
     Indication: DERMATOSIS
     Route: 065
     Dates: start: 20160517
  7. PREDNISONE. [Suspect]
     Active Substance: PREDNISONE
     Indication: B-CELL LYMPHOMA
     Dosage: DATE OF LAST DOSE: 15/MAR/2016 (100 MG)?ROUTE AND STARTING DOSE AS PER PROTOCOL
     Route: 048
     Dates: start: 20151127
  8. LEDERFOLINE [Concomitant]
     Active Substance: LEUCOVORIN CALCIUM
     Indication: ANAEMIA
     Route: 065
     Dates: start: 20151218
  9. DEXERYL (FRANCE) [Concomitant]
     Active Substance: GLYCERIN\PARAFFIN
     Indication: DERMATOSIS
     Route: 065
     Dates: start: 20160425, end: 20160517
  10. ZYLORIC [Concomitant]
     Active Substance: ALLOPURINOL
     Route: 065
     Dates: start: 20151201, end: 20160622
  11. ZELITREX [Concomitant]
     Active Substance: VALACYCLOVIR HYDROCHLORIDE
     Route: 065
     Dates: start: 20151201
  12. TOPALGIC (FRANCE) [Concomitant]
     Active Substance: TRAMADOL
     Indication: HEADACHE
     Route: 065
     Dates: start: 20151204, end: 20160622
  13. RITUXIMAB. [Suspect]
     Active Substance: RITUXIMAB
     Indication: B-CELL LYMPHOMA
     Dosage: MOST RECENT DOSE: 25/APR/2016 (685 MG) AT 12:00?ROUTE AND STARTING DOSE AS PER PROTOCOL
     Route: 042
     Dates: start: 20151127

REACTIONS (2)
  - Neutropenia [Fatal]
  - Pseudomonas infection [Recovered/Resolved]

NARRATIVE: CASE EVENT DATE: 20160606
